FAERS Safety Report 20220767 (Version 1)
Quarter: 2021Q4

REPORT INFORMATION
  Report Type: Spontaneous
  Country: CN (occurrence: None)
  Receive Date: 20211223
  Receipt Date: 20211223
  Transmission Date: 20220303
  Serious: Yes (Other)
  Sender: FDA-Public Use
  Company Number: CN-ROCHE-2980612

PATIENT
  Age: 61 Year
  Sex: Female
  Weight: 49 kg

DRUGS (3)
  1. CAPECITABINE [Suspect]
     Active Substance: CAPECITABINE
     Indication: Colon cancer
     Route: 048
     Dates: start: 20211203, end: 20211210
  2. OXALIPLATIN [Suspect]
     Active Substance: OXALIPLATIN
     Indication: Colon cancer
     Route: 041
     Dates: start: 20211203, end: 20211203
  3. BEVACIZUMAB [Suspect]
     Active Substance: BEVACIZUMAB
     Indication: Colon cancer
     Route: 041
     Dates: start: 20211203, end: 20211203

REACTIONS (2)
  - Myelosuppression [Recovering/Resolving]
  - Neurotoxicity [Recovering/Resolving]

NARRATIVE: CASE EVENT DATE: 20211203
